FAERS Safety Report 24613269 (Version 1)
Quarter: 2024Q4

REPORT INFORMATION
  Report Type: Spontaneous
  Country: US (occurrence: None)
  Receive Date: 20241112
  Receipt Date: 20241112
  Transmission Date: 20250115
  Serious: No
  Sender: Public
  Company Number: None

PATIENT
  Age: 36 Year
  Sex: Female
  Weight: 46.35 kg

DRUGS (2)
  1. HIZENTRA [Suspect]
     Active Substance: HUMAN IMMUNOGLOBULIN G
     Indication: Selective polysaccharide antibody deficiency
     Dosage: 6 G GRAM(S) WEEKLY SUBCUTANEOUS
     Route: 058
     Dates: start: 20241104, end: 20241111
  2. GAMMAGARD [Suspect]
     Active Substance: HUMAN IMMUNOGLOBULIN G

REACTIONS (8)
  - Abdominal pain upper [None]
  - Dyspepsia [None]
  - Diarrhoea [None]
  - Injection site reaction [None]
  - Injection site pain [None]
  - Headache [None]
  - Dyspnoea [None]
  - Fatigue [None]

NARRATIVE: CASE EVENT DATE: 20241111
